FAERS Safety Report 23162798 (Version 4)
Quarter: 2024Q3

REPORT INFORMATION
  Report Type: Spontaneous
  Country: FR (occurrence: FR)
  Receive Date: 20231109
  Receipt Date: 20240828
  Transmission Date: 20241016
  Serious: Yes (Other)
  Sender: AUROBINDO
  Company Number: FR-AFSSAPS-TS2023001354

PATIENT
  Age: 20 Year
  Sex: Female

DRUGS (15)
  1. CARMUSTINE [Suspect]
     Active Substance: CARMUSTINE
     Indication: Hodgkin^s disease stage IV
     Dosage: 1 DOSAGE FORM TOTAL
     Route: 042
     Dates: start: 20220602, end: 20220602
  2. CARMUSTINE [Suspect]
     Active Substance: CARMUSTINE
     Dosage: UNK UNK, ONCE A DAY
     Route: 065
     Dates: start: 20230601, end: 20230601
  3. DOXORUBICIN [Suspect]
     Active Substance: DOXORUBICIN
     Indication: Hodgkin^s disease stage IV
     Dosage: UNK
     Route: 042
     Dates: start: 202209, end: 202211
  4. MELPHALAN [Suspect]
     Active Substance: MELPHALAN
     Indication: Hodgkin^s disease stage IV
     Dosage: 1 DOSAGE FORM TOTAL
     Route: 042
     Dates: start: 20230530, end: 20230530
  5. MELPHALAN [Suspect]
     Active Substance: MELPHALAN
     Dosage: UNK
     Route: 042
     Dates: start: 20230601, end: 20230601
  6. PREDNISONE [Suspect]
     Active Substance: PREDNISONE
     Indication: Hodgkin^s disease stage IV
     Dosage: 40 MILLIGRAM/SQ. METER
     Route: 048
     Dates: start: 202209, end: 202212
  7. ADCETRIS [Suspect]
     Active Substance: BRENTUXIMAB VEDOTIN
     Indication: Hodgkin^s disease stage IV
     Dosage: UNK
     Route: 042
     Dates: start: 20230215, end: 20230420
  8. CYTARABINE [Suspect]
     Active Substance: CYTARABINE
     Indication: Hodgkin^s disease stage IV
     Dosage: 1 DOSAGE FORM, ONCE A DAY
     Route: 042
     Dates: start: 20230526, end: 20230529
  9. CYTARABINE [Suspect]
     Active Substance: CYTARABINE
     Dosage: 4 DOSAGE FORM
     Route: 065
     Dates: start: 20230601
  10. BRENTUXIMAB VEDOTIN [Suspect]
     Active Substance: BRENTUXIMAB VEDOTIN
     Indication: Hodgkin^s disease stage IV
     Dosage: UNK EVERY 21 DAYS
     Route: 042
     Dates: start: 20230215, end: 20230420
  11. DACARBAZINE [Suspect]
     Active Substance: DACARBAZINE
     Indication: Hodgkin^s disease stage IV
     Dosage: UNK
     Route: 042
     Dates: start: 20221205, end: 20221208
  12. CYCLOPHOSPHAMIDE [Suspect]
     Active Substance: CYCLOPHOSPHAMIDE
     Indication: Hodgkin^s disease stage IV
     Dosage: UNK
     Route: 042
     Dates: start: 20221205, end: 20221208
  13. ETOPOSIDE [Suspect]
     Active Substance: ETOPOSIDE
     Indication: Hodgkin^s disease stage IV
     Dosage: UNK
     Route: 042
     Dates: start: 202209, end: 202211
  14. NIVOLUMAB [Suspect]
     Active Substance: NIVOLUMAB
     Indication: Hodgkin^s disease stage IV
     Dosage: UNK EVERY 21 DAYS
     Route: 042
     Dates: start: 20230215, end: 20230420
  15. ONCOVIN [Suspect]
     Active Substance: VINCRISTINE SULFATE
     Indication: Hodgkin^s disease stage IV
     Dosage: UNK
     Route: 042
     Dates: start: 202209, end: 202211

REACTIONS (3)
  - Osteonecrosis [Not Recovered/Not Resolved]
  - Femur fracture [Not Recovered/Not Resolved]
  - Off label use [Unknown]

NARRATIVE: CASE EVENT DATE: 20230526
